FAERS Safety Report 10088056 (Version 1)
Quarter: 2014Q2

REPORT INFORMATION
  Report Type: Spontaneous
  Country: FR (occurrence: FR)
  Receive Date: 20140421
  Receipt Date: 20140421
  Transmission Date: 20141212
  Serious: Yes (Hospitalization)
  Sender: FDA-Public Use
  Company Number: 2014SP002133

PATIENT
  Age: 6 Year
  Sex: Female

DRUGS (10)
  1. METHOTREXATE [Suspect]
     Indication: NON-HODGKIN^S LYMPHOMA
     Dates: start: 20131228, end: 20140107
  2. METHOTREXATE [Suspect]
     Indication: NON-HODGKIN^S LYMPHOMA
     Dates: start: 20140125
  3. METHOTREXATE [Suspect]
     Indication: NON-HODGKIN^S LYMPHOMA
     Dates: start: 20140207
  4. METHOTREXATE [Suspect]
     Indication: NON-HODGKIN^S LYMPHOMA
     Dates: start: 20140210
  5. METHYLPREDNISOLONE SODIUM SUCCINATE [Suspect]
     Indication: NON-HODGKIN^S LYMPHOMA
     Route: 042
     Dates: start: 20131227
  6. METHYLPREDNISOLONE SODIUM SUCCINATE [Suspect]
     Indication: NON-HODGKIN^S LYMPHOMA
     Dates: start: 20140124
  7. METHYLPREDNISOLONE SODIUM SUCCINATE [Suspect]
     Indication: NON-HODGKIN^S LYMPHOMA
     Route: 042
     Dates: start: 20140128, end: 20140207
  8. ASPARAGINASE [Suspect]
     Indication: NON-HODGKIN^S LYMPHOMA
     Dates: start: 20140107, end: 20140125
  9. VINCRISTINE [Concomitant]
     Indication: NON-HODGKIN^S LYMPHOMA
     Dates: start: 20140103, end: 20140124
  10. DAUNORUBICIN [Concomitant]
     Indication: NON-HODGKIN^S LYMPHOMA
     Dates: start: 20140103, end: 20140124

REACTIONS (4)
  - Posterior reversible encephalopathy syndrome [Recovering/Resolving]
  - Convulsion [Recovering/Resolving]
  - Myoclonus [Recovering/Resolving]
  - Toxicity to various agents [Recovering/Resolving]
